FAERS Safety Report 11787819 (Version 1)
Quarter: 2015Q4

REPORT INFORMATION
  Report Type: Report from Study
  Country: AU (occurrence: AU)
  Receive Date: 20151130
  Receipt Date: 20151130
  Transmission Date: 20160305
  Serious: Yes (Hospitalization, Other)
  Sender: FDA-Public Use
  Company Number: AU-GILEAD-2015-0184429

PATIENT
  Age: 56 Year
  Sex: Male

DRUGS (5)
  1. METFORMIN [Concomitant]
     Active Substance: METFORMIN HYDROCHLORIDE
  2. DACLATASVIR. [Concomitant]
     Active Substance: DACLATASVIR
     Dosage: UNK
     Dates: start: 20151028
  3. NOVORAPID [Concomitant]
     Active Substance: INSULIN ASPART
  4. SOFOSBUVIR [Suspect]
     Active Substance: SOFOSBUVIR
     Indication: PRODUCT USED FOR UNKNOWN INDICATION
     Dosage: 400 MG, UNK
     Route: 048
     Dates: start: 20151028
  5. PROPRANOLOL [Concomitant]
     Active Substance: PROPRANOLOL\PROPRANOLOL HYDROCHLORIDE

REACTIONS (3)
  - Gastric antral vascular ectasia [Recovering/Resolving]
  - Diarrhoea haemorrhagic [Recovering/Resolving]
  - Anaemia [Recovering/Resolving]

NARRATIVE: CASE EVENT DATE: 201511
